FAERS Safety Report 8909532 (Version 1)
Quarter: 2012Q4

REPORT INFORMATION
  Report Type: 
  Country: IN (occurrence: IN)
  Receive Date: 20121115
  Receipt Date: 20121115
  Transmission Date: 20130627
  Serious: Yes (Other)
  Sender: FDA-Public Use
  Company Number: IN-ROXANE LABORATORIES, INC.-2012-RO-02355RO

PATIENT
  Age: 65 Year
  Sex: Male

DRUGS (2)
  1. IMIPRAMINE PAMOATE [Suspect]
     Indication: DEPRESSION
     Dosage: 50 mg
     Route: 048
  2. INSULIN [Suspect]
     Indication: DIABETES MELLITUS

REACTIONS (2)
  - Floppy iris syndrome [Unknown]
  - Cataract [Recovered/Resolved]
